FAERS Safety Report 14701125 (Version 1)
Quarter: 2018Q1

REPORT INFORMATION
  Report Type: Spontaneous
  Country: US (occurrence: US)
  Receive Date: 20180330
  Receipt Date: 20180330
  Transmission Date: 20180509
  Serious: Yes (Hospitalization)
  Sender: FDA-Public Use
  Company Number: US-VERTEX PHARMACEUTICALS-2018-002081

PATIENT
  Sex: Female

DRUGS (13)
  1. FLUOXETINE [Concomitant]
     Active Substance: FLUOXETINE HYDROCHLORIDE
  2. SODIUM CHLORIDE. [Concomitant]
     Active Substance: SODIUM CHLORIDE
  3. FLUTICASONE. [Concomitant]
     Active Substance: FLUTICASONE
  4. LANTUS [Concomitant]
     Active Substance: INSULIN GLARGINE
  5. PERTZYE [Suspect]
     Active Substance: PANCRELIPASE AMYLASE\PANCRELIPASE LIPASE\PANCRELIPASE PROTEASE
     Indication: CYSTIC FIBROSIS
     Dosage: 8 WITH MEALS, 6-7 WITH SNACKS
     Route: 048
     Dates: start: 20160419
  6. AZITHROMYCINE [Concomitant]
     Active Substance: AZITHROMYCIN DIHYDRATE
  7. OMEPRAZOLE. [Concomitant]
     Active Substance: OMEPRAZOLE
  8. BACTRIM DS [Concomitant]
     Active Substance: SULFAMETHOXAZOLE\TRIMETHOPRIM
  9. VENTOLIN [Concomitant]
     Active Substance: ALBUTEROL SULFATE
  10. LEVOTHYROXIN [Concomitant]
     Active Substance: LEVOTHYROXINE
  11. VITAMIN D3 [Concomitant]
     Active Substance: CHOLECALCIFEROL
  12. ORKAMBI [Suspect]
     Active Substance: IVACAFTOR\LUMACAFTOR
     Indication: CYSTIC FIBROSIS
     Dosage: 2 DOSAGE FORM (200/125MG EACH), BID
     Route: 048
     Dates: start: 20160307
  13. LORATADINE. [Concomitant]
     Active Substance: LORATADINE

REACTIONS (1)
  - Cystic fibrosis [Not Recovered/Not Resolved]

NARRATIVE: CASE EVENT DATE: 2018
